FAERS Safety Report 9992213 (Version 1)
Quarter: 2014Q1

REPORT INFORMATION
  Report Type: Spontaneous
  Country: US (occurrence: None)
  Receive Date: 20140228
  Receipt Date: 20140228
  Transmission Date: 20141002
  Serious: Yes (Hospitalization)
  Sender: FDA-Public Use
  Company Number: UTC-034311

PATIENT
  Age: 47 Year
  Sex: Female
  Weight: 90.9 kg

DRUGS (1)
  1. REMODULIN [Suspect]
     Indication: PULMONARY ARTERIAL HYPERTENSION
     Dosage: 86.4 UG/KG (0.06 UG/KG, 1 IN 1 MIN)
     Route: 058
     Dates: start: 20101018

REACTIONS (1)
  - Infusion site cellulitis [None]
